FAERS Safety Report 14455753 (Version 1)
Quarter: 2018Q1

REPORT INFORMATION
  Report Type: Spontaneous
  Country: CN (occurrence: CN)
  Receive Date: 20180130
  Receipt Date: 20180130
  Transmission Date: 20180509
  Serious: Yes (Other)
  Sender: FDA-Public Use
  Company Number: CN-CONCORDIA PHARMACEUTICALS INC.-E2B_00009666

PATIENT
  Age: 62 Year
  Sex: Female

DRUGS (5)
  1. PREDNISOLONE. [Suspect]
     Active Substance: PREDNISOLONE
     Dosage: REDUCED DOSE; PREDNISOLONE ACETATE: 1%
     Route: 061
  2. CARTEOLOL HYDROCHLORIDE. [Concomitant]
     Active Substance: CARTEOLOL HYDROCHLORIDE
     Indication: GLAUCOMATOCYCLITIC CRISES
  3. PREDNISOLONE. [Suspect]
     Active Substance: PREDNISOLONE
     Indication: GLAUCOMATOCYCLITIC CRISES
     Dosage: PREDNISOLONE ACETATE: 1%
     Route: 061
  4. LEVOFLOXACIN. [Concomitant]
     Active Substance: LEVOFLOXACIN
     Indication: ANTIBIOTIC THERAPY
     Route: 061
  5. BROMFENAC SODIUM HYDRATE [Concomitant]
     Indication: GLAUCOMATOCYCLITIC CRISES

REACTIONS (4)
  - Eyelid ptosis [Recovered/Resolved]
  - Apoptosis [Recovered/Resolved]
  - Cataract [Recovered/Resolved]
  - Muscular weakness [Recovered/Resolved]
